APPROVED DRUG PRODUCT: PERPHENAZINE AND AMITRIPTYLINE HYDROCHLORIDE
Active Ingredient: AMITRIPTYLINE HYDROCHLORIDE; PERPHENAZINE
Strength: 10MG;2MG
Dosage Form/Route: TABLET;ORAL
Application: A073007 | Product #001
Applicant: CHARTWELL RX SCIENCES LLC
Approved: Oct 17, 1991 | RLD: No | RS: No | Type: DISCN